FAERS Safety Report 18823965 (Version 1)
Quarter: 2021Q1

REPORT INFORMATION
  Report Type: Report from Study
  Country: None (occurrence: None)
  Receive Date: 20210202
  Receipt Date: 20210202
  Transmission Date: 20210419
  Serious: Yes (Hospitalization, Other)
  Sender: FDA-Public Use
  Company Number: US-AKORN-160040

PATIENT
  Age: 68 Year
  Sex: Male

DRUGS (1)
  1. FENTANYL CITRATE INJECTION CII [Suspect]
     Active Substance: FENTANYL CITRATE

REACTIONS (7)
  - Chest pain [Unknown]
  - Back pain [Unknown]
  - Drug interaction [Unknown]
  - Malignant neoplasm progression [Unknown]
  - Arthralgia [Unknown]
  - Pneumothorax [Unknown]
  - Off label use [Unknown]

NARRATIVE: CASE EVENT DATE: 20200926
